FAERS Safety Report 12059635 (Version 1)
Quarter: 2016Q1

REPORT INFORMATION
  Report Type: Spontaneous
  Country: US (occurrence: None)
  Receive Date: 20160209
  Receipt Date: 20160209
  Transmission Date: 20160526
  Serious: Yes (Hospitalization)
  Sender: FDA-Public Use
  Company Number: None

PATIENT
  Sex: Male
  Weight: 91.4 kg

DRUGS (10)
  1. DESONIDE. [Concomitant]
     Active Substance: DESONIDE
  2. VIEKIRA PAK [Suspect]
     Active Substance: DASABUVIR\OMBITASVIR\PARITAPREVIR\RITONAVIR
     Indication: HEPATITIS C
     Dosage: 12.5MG, 75MG, 50MG, 250MG 2 X DAILY 1 X BID
     Route: 048
     Dates: start: 20150731
  3. CITALOPRAM [Concomitant]
     Active Substance: CITALOPRAM HYDROBROMIDE
  4. HYDROMORPHONE [Concomitant]
     Active Substance: HYDROMORPHONE
  5. FLUOCINONIDE. [Concomitant]
     Active Substance: FLUOCINONIDE
  6. BUPROPION. [Concomitant]
     Active Substance: BUPROPION
  7. RIBAVIRIN 1000MG [Suspect]
     Active Substance: RIBAVIRIN
     Indication: HEPATITIS C
     Dosage: 1 X DAILY
     Route: 048
     Dates: start: 20150731
  8. CLONAZEPAM. [Concomitant]
     Active Substance: CLONAZEPAM
  9. KETOCONAZOLE. [Concomitant]
     Active Substance: KETOCONAZOLE
  10. LISINOPRIL. [Concomitant]
     Active Substance: LISINOPRIL

REACTIONS (1)
  - Intestinal obstruction [None]

NARRATIVE: CASE EVENT DATE: 20151202
